FAERS Safety Report 23146193 (Version 1)
Quarter: 2023Q4

REPORT INFORMATION
  Report Type: Spontaneous
  Country: FR (occurrence: FR)
  Receive Date: 20231104
  Receipt Date: 20231104
  Transmission Date: 20240110
  Serious: Yes (Hospitalization, Other)
  Sender: FDA-Public Use
  Company Number: FR-AFSSAPS-PA2023001479

PATIENT
  Age: 49 Year
  Sex: Female
  Weight: 45.8 kg

DRUGS (3)
  1. PANTOPRAZOLE [Suspect]
     Active Substance: PANTOPRAZOLE
     Indication: Abdominal pain upper
     Dosage: 40 MILLIGRAM, ONCE A DAY, 1 COMPRIM? PAR JOUR
     Route: 048
     Dates: start: 20230616, end: 20230618
  2. FIDAXOMICIN [Suspect]
     Active Substance: FIDAXOMICIN
     Indication: Clostridium difficile infection
     Dosage: 1 COMPRIM? MATIN ET SOIR PENDANT 10 JOURS
     Route: 048
     Dates: start: 20230616
  3. PHLOROGLUCINOL\1,3,5-TRIMETHOXYBENZENE [Concomitant]
     Active Substance: PHLOROGLUCINOL\1,3,5-TRIMETHOXYBENZENE
     Indication: Colitis ulcerative
     Dosage: UNK, A AMPOULE IF NECESSARY MORNING, NOON AND EVENING
     Route: 042
     Dates: start: 20230616

REACTIONS (1)
  - Neutropenia [Not Recovered/Not Resolved]

NARRATIVE: CASE EVENT DATE: 20230619
